FAERS Safety Report 21433851 (Version 2)
Quarter: 2024Q1

REPORT INFORMATION
  Report Type: Report from Study
  Country: US (occurrence: US)
  Receive Date: 20221010
  Receipt Date: 20240220
  Transmission Date: 20240410
  Serious: Yes (Other)
  Sender: FDA-Public Use
  Company Number: US-ABBVIE-4137492

PATIENT
  Sex: Male

DRUGS (1)
  1. SKYRIZI [Suspect]
     Active Substance: RISANKIZUMAB-RZAA
     Indication: Psoriasis
     Route: 058

REACTIONS (2)
  - Hepatic cirrhosis [Not Recovered/Not Resolved]
  - Sinonasal papilloma [Not Recovered/Not Resolved]

NARRATIVE: CASE EVENT DATE: 20220101
